FAERS Safety Report 6426149-X (Version None)
Quarter: 2009Q4

REPORT INFORMATION
  Report Type: 
  Country: None (occurrence: None)
  Receive Date: 20091030
  Receipt Date: 20091016
  Transmission Date: 20100525
  Serious: Yes (Death, Life-Threatening, Other)
  Sender: FDA-Public Use
  Company Number: 2009S1000092

PATIENT
  Age: 1 Day
  Sex: Male

DRUGS (2)
  1. INOMAX [Suspect]
     Indication: PERSISTENT FOETAL CIRCULATION
     Dosage: 17 PPM; CONT; INH
     Route: 055
     Dates: start: 20091015, end: 20091016
  2. INOVENT (DELIVERY SYSTEM) (INOVENT (DELIVERY SYSTEM) [Suspect]
     Indication: PERSISTENT FOETAL CIRCULATION

REACTIONS (3)
  - CEREBRAL HAEMORRHAGE [None]
  - MEDICAL DEVICE COMPLICATION [None]
  - OXYGEN SATURATION DECREASED [None]
